FAERS Safety Report 17981550 (Version 1)
Quarter: 2020Q3

REPORT INFORMATION
  Report Type: Other
  Country: DE (occurrence: DE)
  Receive Date: 20200706
  Receipt Date: 20200706
  Transmission Date: 20201103
  Serious: Yes (Hospitalization, Other)
  Sender: FDA-Public Use
  Company Number: DE-LUPIN PHARMACEUTICALS INC.-2020-03036

PATIENT
  Age: 14 Year
  Weight: 72 kg

DRUGS (4)
  1. VALPROAT [Suspect]
     Active Substance: VALPROATE SODIUM
     Indication: EPILEPSY
     Dosage: 300MG?0?450MG
     Route: 048
  2. TOPIRAMATE. [Suspect]
     Active Substance: TOPIRAMATE
     Indication: EPILEPSY
     Dosage: 250 MILLIGRAM, QD (250 MILLGRAM(S) EVERY DAYS, 2 SEPARATED DOSES)
     Route: 048
  3. VALPROAT [Suspect]
     Active Substance: VALPROATE SODIUM
     Dosage: DOSE INCREASED
     Route: 048
  4. TOPIRAMATE. [Suspect]
     Active Substance: TOPIRAMATE
     Dosage: UNK (DOSE REDUCED)
     Route: 048

REACTIONS (2)
  - Seizure [Recovered/Resolved]
  - Drug withdrawal convulsions [Unknown]

NARRATIVE: CASE EVENT DATE: 20180803
